FAERS Safety Report 6106837-5 (Version None)
Quarter: 2009Q1

REPORT INFORMATION
  Report Type: 
  Country: None (occurrence: None)
  Receive Date: 20090304
  Receipt Date: 20090302
  Transmission Date: 20090719
  Serious: Yes (Hospitalization)
  Sender: FDA-Public Use
  Company Number: GXKR2009DE02475

PATIENT
  Age: 71 Year
  Sex: Female
  Weight: 81 kg

DRUGS (11)
  1. BISOPROLOL             (BISOPROLOL)         FILM-COATED TABLET [Suspect]
     Indication: DYSPNOEA
     Dosage: 10 MG, QD; 5 MG, QD
     Dates: start: 20080101, end: 20080925
  2. BISOPROLOL             (BISOPROLOL)         FILM-COATED TABLET [Suspect]
     Indication: DYSPNOEA
     Dosage: 10 MG, QD; 5 MG, QD
     Dates: start: 20081004
  3. SOLOSIN - SLOW RELEASE         (THEOPHYLLINE) MODIFIE RELEASE TABLET [Suspect]
     Indication: DYSPNOEA
     Dosage: 135 MG, 3 IN DAY, ORAL
     Route: 048
     Dates: start: 20081002, end: 20081004
  4. SIMVASTATIN [Concomitant]
  5. RAMIPRIL [Concomitant]
  6. PROCORALAN     (VABRADINE HYDROCHLORIDE) [Concomitant]
  7. OMEPRAZOLE [Concomitant]
  8. FELODIPINE [Concomitant]
  9. CLOPIDOGREL [Concomitant]
  10. CALCIUM (CALCIUM) [Concomitant]
  11. ACETYLSALICYLIC ACID SRT [Concomitant]

REACTIONS (1)
  - TACHYCARDIA [None]
